FAERS Safety Report 16719643 (Version 1)
Quarter: 2019Q3

REPORT INFORMATION
  Report Type: Spontaneous
  Country: US (occurrence: US)
  Receive Date: 20190820
  Receipt Date: 20190820
  Transmission Date: 20191005
  Serious: No
  Sender: FDA-Public Use
  Company Number: US-MYLANLABS-2019M1074513

PATIENT
  Sex: Female
  Weight: 77 kg

DRUGS (6)
  1. CYMBALTA [Concomitant]
     Active Substance: DULOXETINE HYDROCHLORIDE
     Dosage: 60 MILLIGRAM, BID
  2. FLEXERIL [Concomitant]
     Active Substance: CYCLOBENZAPRINE HYDROCHLORIDE
     Dosage: 10 MILLIGRAM, TID (AS NEEDED)
  3. VITAMIN D                          /00107901/ [Concomitant]
     Active Substance: ERGOCALCIFEROL
     Dosage: 1000 MILLIGRAM, QD
  4. LYRICA [Concomitant]
     Active Substance: PREGABALIN
     Dosage: 75 MILLIGRAM, HS (2 AT BEDTIME )
  5. OXYCODONE [Concomitant]
     Active Substance: OXYCODONE
     Dosage: 15 MILLIGRAM, TID
  6. FENTANYL TRANSDERMAL SYSTEM [Suspect]
     Active Substance: FENTANYL
     Indication: BACK PAIN
     Dosage: UNK
     Route: 062

REACTIONS (8)
  - Application site scar [Recovering/Resolving]
  - Application site erythema [Recovering/Resolving]
  - Application site exfoliation [Recovering/Resolving]
  - Product adhesion issue [Not Recovered/Not Resolved]
  - Product quality issue [Unknown]
  - Application site pruritus [Recovering/Resolving]
  - Wrong technique in product usage process [Unknown]
  - Application site burn [Unknown]
